FAERS Safety Report 10151521 (Version 1)
Quarter: 2014Q2

REPORT INFORMATION
  Report Type: Report from Study
  Country: US (occurrence: US)
  Receive Date: 20140503
  Receipt Date: 20140503
  Transmission Date: 20141212
  Serious: Yes (Other)
  Sender: FDA-Public Use
  Company Number: PHEH2014US008694

PATIENT
  Sex: Female

DRUGS (1)
  1. EXELON PATCH [Suspect]
     Dosage: 4.6 MG, UNK
     Route: 062

REACTIONS (1)
  - Blindness [Unknown]
